FAERS Safety Report 8185529-5 (Version None)
Quarter: 2012Q1

REPORT INFORMATION
  Report Type: 
  Country: None (occurrence: None)
  Receive Date: 20120305
  Receipt Date: 20120223
  Transmission Date: 20120608
  Serious: Yes (Death, Hospitalization)
  Sender: FDA-Public Use
  Company Number: ES-CELGENEUS-144-50794-11122779

PATIENT
  Sex: Male

DRUGS (1)
  1. VIDAZA [Suspect]
     Route: 065

REACTIONS (11)
  - RHINALGIA [None]
  - PLEURAL EFFUSION [None]
  - RESPIRATORY FAILURE [None]
  - SUPRAVENTRICULAR EXTRASYSTOLES [None]
  - DIZZINESS [None]
  - PNEUMONIA [None]
  - DYSPNOEA [None]
  - NEOPLASM PROGRESSION [None]
  - VENTRICULAR EXTRASYSTOLES [None]
  - ASTHENIA [None]
  - ACUTE MYELOID LEUKAEMIA [None]
